FAERS Safety Report 9323077 (Version 1)
Quarter: 2013Q2

REPORT INFORMATION
  Report Type: Spontaneous
  Country: US (occurrence: US)
  Receive Date: 20130603
  Receipt Date: 20130603
  Transmission Date: 20140414
  Serious: No
  Sender: FDA-Public Use
  Company Number: US-B.I. PHARMACEUTICALS,INC./RIDGEFIELD-2013-BI-14973BP

PATIENT
  Age: 75 Year
  Sex: Female
  Weight: 64 kg

DRUGS (6)
  1. ZANTAC COOL MINT (TABLETS) [Suspect]
     Indication: URTICARIA
     Dosage: 300 MG
     Route: 048
     Dates: start: 20130516
  2. ZYRTEC [Suspect]
     Indication: URTICARIA
     Dosage: 30 MG
     Route: 048
     Dates: start: 20130502
  3. ALLEGRA [Concomitant]
     Indication: URTICARIA
     Route: 048
     Dates: start: 20130515
  4. NORCO [Concomitant]
     Indication: BACK PAIN
     Route: 048
  5. NEXIUM [Concomitant]
     Indication: HIATUS HERNIA
     Dosage: 20 MG
     Route: 048
  6. MORPHINE SULFATE [Concomitant]
     Indication: BACK PAIN
     Dosage: 40 MG
     Route: 048

REACTIONS (2)
  - Abdominal pain upper [Not Recovered/Not Resolved]
  - Insomnia [Not Recovered/Not Resolved]
